FAERS Safety Report 5771605-0 (Version None)
Quarter: 2008Q2

REPORT INFORMATION
  Report Type: 
  Country: None (occurrence: None)
  Receive Date: 20080613
  Receipt Date: 20080609
  Transmission Date: 20081010
  Serious: Yes (Other)
  Sender: FDA-Public Use
  Company Number: ES-BAYER-200820280GPV

PATIENT
  Age: 80 Year
  Sex: Female

DRUGS (1)
  1. NEXAVAR [Suspect]
     Indication: HEPATIC NEOPLASM MALIGNANT
     Route: 065
     Dates: start: 20080101, end: 20080101

REACTIONS (2)
  - AMNESIA [None]
  - ATTENTION DEFICIT/HYPERACTIVITY DISORDER [None]
